FAERS Safety Report 10460360 (Version 1)
Quarter: 2014Q3

REPORT INFORMATION
  Report Type: Spontaneous
  Country: CA (occurrence: CA)
  Receive Date: 20140917
  Receipt Date: 20140917
  Transmission Date: 20150326
  Serious: Yes (Death, Other)
  Sender: FDA-Public Use
  Company Number: PHHY2014CA119527

PATIENT
  Age: 84 Year
  Sex: Female

DRUGS (2)
  1. CARBOPLATIN. [Suspect]
     Active Substance: CARBOPLATIN
     Indication: VULVAL CANCER
     Route: 042
  2. PACLITAXEL. [Suspect]
     Active Substance: PACLITAXEL
     Indication: VULVAL CANCER
     Dosage: 175 MG/M2, UNK
     Route: 042

REACTIONS (7)
  - Neuropathy peripheral [Unknown]
  - Malignant neoplasm progression [Fatal]
  - Vaginal cancer stage 0 [Unknown]
  - Drug intolerance [Unknown]
  - Squamous cell carcinoma [Unknown]
  - Vulval cancer recurrent [Fatal]
  - Asthenia [Recovering/Resolving]
